FAERS Safety Report 9331799 (Version 1)
Quarter: 2013Q2

REPORT INFORMATION
  Report Type: Spontaneous
  Country: SG (occurrence: SG)
  Receive Date: 20130605
  Receipt Date: 20130605
  Transmission Date: 20140414
  Serious: Yes (Other)
  Sender: FDA-Public Use
  Company Number: SG-BAYER-2013-065612

PATIENT
  Age: 60 Year
  Sex: Male

DRUGS (14)
  1. NEXAVAR TABLET 200 MG [Suspect]
     Indication: HEPATOCELLULAR CARCINOMA
     Dosage: 400 MG, BD
     Route: 048
     Dates: start: 20100721, end: 20100725
  2. NEXAVAR TABLET 200 MG [Suspect]
     Indication: HEPATOCELLULAR CARCINOMA
     Dosage: 200 MG, BD
     Route: 048
  3. INSULIN ISOPHANE BW [Concomitant]
     Dosage: UNK
     Dates: start: 20070505
  4. OMEPRAZOLE [Concomitant]
     Indication: DEAFNESS BILATERAL
     Dosage: UNK
     Dates: start: 20090724
  5. OMEPRAZOLE [Concomitant]
     Indication: DEAFNESS BILATERAL
     Dosage: UNK
     Dates: start: 20100728
  6. METFORMIN HCL [Concomitant]
     Dosage: UNK
     Dates: start: 20050505
  7. SIMVASTATIN [Concomitant]
     Dosage: UNK
     Dates: start: 20070515
  8. FERROUS FUMARATE [Concomitant]
     Dosage: UNK
     Dates: start: 20090724
  9. ENALAPRIL MALEATE [Concomitant]
     Dosage: UNK
     Dates: start: 20070215
  10. ATENOLOL [Concomitant]
     Dosage: UNK
     Dates: start: 20080110
  11. ASPIRIN [ACETYLSALICYLIC ACID] [Concomitant]
     Indication: CEREBROVASCULAR ACCIDENT
     Dosage: UNK
     Dates: start: 20070215
  12. AMLODIPINE [Concomitant]
     Dosage: UNK
     Dates: start: 20070515
  13. VITAMIN B COMPLEX [Concomitant]
     Dosage: UNK
     Dates: start: 20070515
  14. FAMOTIDINE [Concomitant]
     Indication: CEREBROVASCULAR ACCIDENT
     Dosage: UNK

REACTIONS (1)
  - Deafness bilateral [Recovered/Resolved]
